FAERS Safety Report 8818403 (Version 2)
Quarter: 2013Q1

REPORT INFORMATION
  Report Type: Report from Study
  Country: US (occurrence: US)
  Receive Date: 20121001
  Receipt Date: 20130104
  Transmission Date: 20140127
  Serious: Yes (Hospitalization)
  Sender: FDA-Public Use
  Company Number: US-SHIRE-ALL1-2012-04718

PATIENT
  Age: 6 Year
  Sex: Male

DRUGS (3)
  1. IDURSULFASE [Suspect]
     Indication: MUCOPOLYSACCHARIDOSIS II
     Dosage: UNK UNK, UNKNOWN
     Route: 041
     Dates: start: 20091014
  2. LORATADINE [Concomitant]
     Indication: PREMEDICATION
     Dosage: 5.0 MG, 1X/WEEK
     Route: 048
     Dates: start: 20091203
  3. PARACETAMOL [Concomitant]
     Indication: PREMEDICATION
     Dosage: 240 MG, 1X/WEEK
     Route: 048
     Dates: start: 20091203

REACTIONS (2)
  - Pneumonia viral [Recovered/Resolved]
  - Hypoxia [Recovered/Resolved]
